FAERS Safety Report 6827771-9 (Version None)
Quarter: 2010Q3

REPORT INFORMATION
  Report Type: 
  Country: None (occurrence: None)
  Receive Date: 20100709
  Receipt Date: 20070129
  Transmission Date: 20110219
  Serious: No
  Sender: FDA-Public Use
  Company Number: US-PFIZER INC-2007008837

PATIENT
  Sex: Female
  Weight: 62.14 kg

DRUGS (2)
  1. CHANTIX [Suspect]
     Indication: SMOKING CESSATION THERAPY
     Dates: start: 20060914
  2. ZOLOFT [Concomitant]

REACTIONS (5)
  - DRUG DOSE OMISSION [None]
  - DYSGEUSIA [None]
  - EAR DISCOMFORT [None]
  - EAR DISORDER [None]
  - MALAISE [None]
